FAERS Safety Report 9797510 (Version 1)
Quarter: 2014Q1

REPORT INFORMATION
  Report Type: Report from Study
  Country: AR (occurrence: AR)
  Receive Date: 20140106
  Receipt Date: 20140106
  Transmission Date: 20141002
  Serious: Yes (Other)
  Sender: FDA-Public Use
  Company Number: PHHY2013AR152996

PATIENT
  Sex: Female

DRUGS (1)
  1. DIOVAN [Suspect]
     Indication: BLOOD PRESSURE ABNORMAL
     Dosage: 80 MG, UNK
     Route: 048
     Dates: end: 201311

REACTIONS (2)
  - Breast cancer [Not Recovered/Not Resolved]
  - Skin lesion [Unknown]
